FAERS Safety Report 20991611 (Version 8)
Quarter: 2022Q4

REPORT INFORMATION
  Report Type: Report from Study
  Country: JP (occurrence: JP)
  Receive Date: 20220622
  Receipt Date: 20221228
  Transmission Date: 20230113
  Serious: Yes (Hospitalization)
  Sender: FDA-Public Use
  Company Number: JP-ELI_LILLY_AND_COMPANY-JP202206007344

PATIENT
  Age: 49 Year
  Sex: Male
  Weight: 53 kg

DRUGS (2)
  1. RETEVMO [Suspect]
     Active Substance: SELPERCATINIB
     Indication: Medullary thyroid cancer
     Dosage: 320 MG, UNKNOWN
     Route: 048
     Dates: start: 20220405, end: 20221128
  2. PREDNISOLONE [Concomitant]
     Active Substance: PREDNISOLONE
     Indication: Pyoderma gangrenosum
     Dosage: 7 MG

REACTIONS (2)
  - Brain abscess [Recovering/Resolving]
  - Sinusitis [Recovering/Resolving]

NARRATIVE: CASE EVENT DATE: 20220423
